FAERS Safety Report 5237273-1 (Version None)
Quarter: 2007Q1

REPORT INFORMATION
  Report Type: 
  Country: None (occurrence: None)
  Receive Date: 20070213
  Receipt Date: 20070208
  Transmission Date: 20070707
  Serious: Yes (Death)
  Sender: FDA-Public Use
  Company Number: 2007PK00211

PATIENT
  Age: 10951 Day
  Sex: Male
  Weight: 96.6 kg

DRUGS (2)
  1. SEROQUEL [Suspect]
     Indication: DELUSIONAL DISORDER, PERSECUTORY TYPE
     Route: 048
     Dates: start: 20051201, end: 20061201
  2. ABILIFY [Concomitant]
     Dates: start: 20051201, end: 20061201

REACTIONS (1)
  - SUDDEN DEATH [None]
